FAERS Safety Report 4444924-8 (Version None)
Quarter: 2004Q3

REPORT INFORMATION
  Report Type: 
  Country: None (occurrence: None)
  Receive Date: 20040903
  Receipt Date: 20040820
  Transmission Date: 20050211
  Serious: Yes (Other)
  Sender: FDA-Public Use
  Company Number: 2004-119445-NL

PATIENT
  Age: 20 Year
  Sex: Female
  Weight: 55 kg

DRUGS (1)
  1. NUVARING [Suspect]
     Dosage: VAGINAL, EXTENDED USE - 3 WEEKS INSERTED, REMOVED AND INSERTED AS NEW RING
     Route: 067

REACTIONS (8)
  - DISCOMFORT [None]
  - HERPES SIMPLEX [None]
  - PAIN [None]
  - RASH VESICULAR [None]
  - SKIN FISSURES [None]
  - UTERINE CERVIX ULCER [None]
  - VAGINAL DISCHARGE [None]
  - VULVOVAGINAL ULCERATION [None]
